FAERS Safety Report 7482857-3 (Version None)
Quarter: 2011Q2

REPORT INFORMATION
  Report Type: 
  Country: None (occurrence: None)
  Receive Date: 20110516
  Receipt Date: 20110511
  Transmission Date: 20111010
  Serious: Yes (Hospitalization, Other)
  Sender: FDA-Public Use
  Company Number: US-PFIZER INC-2011102099

PATIENT
  Sex: Female
  Weight: 40 kg

DRUGS (4)
  1. NORVASC [Suspect]
     Indication: HYPERTENSION
     Dosage: 5 MG, DAILY
     Route: 048
  2. XALATAN [Suspect]
     Indication: GLAUCOMA
     Dosage: ONE DROP IN EACH EYE, 1X/DAY
     Route: 047
  3. VALSARTAN [Concomitant]
     Indication: HYPERTENSION
     Dosage: UNK
  4. ZETIA [Concomitant]
     Indication: BLOOD CHOLESTEROL INCREASED
     Dosage: UNK

REACTIONS (3)
  - WHITE BLOOD CELL COUNT DECREASED [None]
  - ACUTE RESPIRATORY FAILURE [None]
  - COLON CANCER [None]
